FAERS Safety Report 12613486 (Version 1)
Quarter: 2016Q3

REPORT INFORMATION
  Report Type: Report from Study
  Country: US (occurrence: US)
  Receive Date: 20160802
  Receipt Date: 20160802
  Transmission Date: 20161109
  Serious: Yes (Other)
  Sender: FDA-Public Use
  Company Number: US-ROCHE-1805640

PATIENT
  Age: 23 Year
  Sex: Female
  Weight: 70.8 kg

DRUGS (1)
  1. VISMODEGIB [Suspect]
     Active Substance: VISMODEGIB
     Indication: BRAIN NEOPLASM MALIGNANT
     Route: 048

REACTIONS (3)
  - Myalgia [Unknown]
  - Fatigue [Unknown]
  - Depression [Unknown]

NARRATIVE: CASE EVENT DATE: 20100309
